FAERS Safety Report 11099818 (Version 1)
Quarter: 2015Q2

REPORT INFORMATION
  Report Type: Report from Study
  Country: GB (occurrence: GB)
  Receive Date: 20150508
  Receipt Date: 20150508
  Transmission Date: 20150821
  Serious: Yes (Life-Threatening, Other)
  Sender: FDA-Public Use
  Company Number: GB-PFIZER INC-2015150504

PATIENT
  Age: 41 Year
  Sex: Male

DRUGS (1)
  1. EPANUTIN [Suspect]
     Active Substance: PHENYTOIN SODIUM
     Indication: SIMPLE PARTIAL SEIZURES
     Dosage: 0.3 G, DAILY

REACTIONS (2)
  - Status epilepticus [Unknown]
  - Stupor [Unknown]
